FAERS Safety Report 18684209 (Version 1)
Quarter: 2020Q4

REPORT INFORMATION
  Report Type: Spontaneous
  Country: US (occurrence: US)
  Receive Date: 20201230
  Receipt Date: 20201230
  Transmission Date: 20210114
  Serious: Yes (Other)
  Sender: FDA-Public Use
  Company Number: US-SA-2020SA374702

PATIENT

DRUGS (1)
  1. ZANTAC [Suspect]
     Active Substance: RANITIDINE HYDROCHLORIDE
     Indication: DYSPEPSIA
     Dosage: 25 MG, QD
     Dates: start: 198901, end: 201004

REACTIONS (2)
  - Uterine cancer [Recovering/Resolving]
  - Cervix carcinoma stage III [Recovering/Resolving]

NARRATIVE: CASE EVENT DATE: 20100101
